FAERS Safety Report 14223380 (Version 2)
Quarter: 2017Q4

REPORT INFORMATION
  Report Type: Spontaneous
  Country: TR (occurrence: TR)
  Receive Date: 20171124
  Receipt Date: 20171125
  Transmission Date: 20180321
  Serious: No
  Sender: FDA-Public Use
  Company Number: TR-JNJFOC-20171113267

PATIENT
  Sex: Female

DRUGS (2)
  1. NEUTROGENA UNSPECIFIED (COSMETICS) [Suspect]
     Active Substance: COSMETICS
  2. NEUTROGENA OTC NOS [Suspect]
     Active Substance: AVOBENZONE\HOMOSALATE\OCTISALATE\OCTOCRYLENE\OXYBENZONE OR BENZOYL PEROXIDE OR COAL TAR OR SALICYLIC ACID OR TITANIUM DIOXIDE OR ZINC OXIDE
     Indication: PRODUCT USED FOR UNKNOWN INDICATION
     Route: 061
     Dates: start: 2017

REACTIONS (2)
  - Application site hypersensitivity [Unknown]
  - Application site swelling [Unknown]

NARRATIVE: CASE EVENT DATE: 2017
